FAERS Safety Report 10011695 (Version 1)
Quarter: 2014Q1

REPORT INFORMATION
  Report Type: Spontaneous
  Country: US (occurrence: None)
  Receive Date: 20140312
  Receipt Date: 20140312
  Transmission Date: 20141002
  Serious: Yes (Death)
  Sender: FDA-Public Use
  Company Number: UTC-045391

PATIENT
  Age: 77 Year
  Sex: Male
  Weight: 73.2 kg

DRUGS (2)
  1. REMODULIN [Suspect]
     Indication: COR PULMONALE CHRONIC
     Dosage: (0.045 UG/KG, 1 IN 1 MIN)
     Route: 058
     Dates: start: 20120201
  2. SILDENAFIL [Concomitant]

REACTIONS (1)
  - Chronic obstructive pulmonary disease [None]
